FAERS Safety Report 4721326-8 (Version None)
Quarter: 2005Q3

REPORT INFORMATION
  Report Type: 
  Country: None (occurrence: None)
  Receive Date: 20050721
  Receipt Date: 20040622
  Transmission Date: 20060218
  Serious: No
  Sender: FDA-Public Use
  Company Number: US-BRISTOL-MYERS SQUIBB COMPANY-12622700

PATIENT
  Age: 73 Year
  Sex: Female
  Weight: 63 kg

DRUGS (5)
  1. COUMADIN [Suspect]
     Indication: ATRIAL FIBRILLATION
     Dosage: ON VARYING DOSES FOR A YEAR; CURRENTLY ON 2.5MG + 5MG- ALTERNATING DAYS.
     Route: 048
  2. ATENOLOL [Concomitant]
  3. CARDIZEM [Concomitant]
  4. DIGOXIN [Concomitant]
  5. THYROID TAB [Concomitant]

REACTIONS (1)
  - INTERNATIONAL NORMALISED RATIO ABNORMAL [None]
